FAERS Safety Report 8759916 (Version 1)
Quarter: 2012Q4

REPORT INFORMATION
  Report Type: 
  Country: US (occurrence: US)
  Receive Date: 20120829
  Receipt Date: 20120829
  Transmission Date: 20130627
  Serious: Yes (Death)
  Sender: FDA-Public Use
  Company Number: US-WATSON-2012-14620

PATIENT
  Age: 80 Year
  Sex: Male

DRUGS (1)
  1. RAPAFLO (WATSON LABORATORIES) [Suspect]
     Indication: URINE FLOW DECREASED
     Dosage: 8 mg, daily
     Route: 048

REACTIONS (1)
  - Cerebrovascular accident [Fatal]
